FAERS Safety Report 13516004 (Version 1)
Quarter: 2017Q2

REPORT INFORMATION
  Report Type: Spontaneous
  Country: CA (occurrence: CA)
  Receive Date: 20170505
  Receipt Date: 20170505
  Transmission Date: 20170830
  Serious: Yes (Other)
  Sender: FDA-Public Use
  Company Number: CA-TEVA-765173ACC

PATIENT
  Age: 77 Year
  Sex: Female
  Weight: 63 kg

DRUGS (9)
  1. ACETAMINOPHEN. [Concomitant]
     Active Substance: ACETAMINOPHEN
  2. CALCIUM 500 AND VITAMINE D 1000 [Concomitant]
  3. DOCUSATE [Concomitant]
     Active Substance: DOCUSATE
  4. RISEDRONATE [Concomitant]
     Active Substance: RISEDRONATE SODIUM
  5. RELAXA [Concomitant]
  6. SENNOSIDES. [Concomitant]
     Active Substance: SENNOSIDES
  7. WARFARIN [Suspect]
     Active Substance: WARFARIN
     Indication: PULMONARY EMBOLISM
     Route: 065
  8. ENOXAPARIN [Concomitant]
     Active Substance: ENOXAPARIN
  9. URISEC 22 [Concomitant]

REACTIONS (2)
  - Pruritus generalised [Not Recovered/Not Resolved]
  - Sleep disorder [Not Recovered/Not Resolved]
